FAERS Safety Report 4547708-5 (Version None)
Quarter: 2005Q1

REPORT INFORMATION
  Report Type: 
  Country: None (occurrence: None)
  Receive Date: 20050107
  Receipt Date: 20040910
  Transmission Date: 20050727
  Serious: Yes (Hospitalization)
  Sender: FDA-Public Use
  Company Number: FR-AMGEN-UK091375

PATIENT
  Sex: Female

DRUGS (3)
  1. NEULASTA [Suspect]
     Indication: CHEMOTHERAPY
     Route: 058
     Dates: start: 20040714
  2. EPIRUBICIN [Suspect]
     Route: 042
     Dates: start: 20040713
  3. ENDOXAN [Suspect]
     Route: 042
     Dates: start: 20040713

REACTIONS (1)
  - BONE MARROW DEPRESSION [None]
